FAERS Safety Report 17908202 (Version 2)
Quarter: 2020Q3

REPORT INFORMATION
  Report Type: Report from Study
  Country: US (occurrence: US)
  Receive Date: 20200617
  Receipt Date: 20200810
  Transmission Date: 20201103
  Serious: No
  Sender: FDA-Public Use
  Company Number: US-BIOVITRUM-2020US3166

PATIENT
  Age: 45 Year
  Sex: Female

DRUGS (2)
  1. KINERET [Suspect]
     Active Substance: ANAKINRA
     Route: 058
     Dates: start: 20200529
  2. KINERET [Suspect]
     Active Substance: ANAKINRA
     Indication: PERICARDITIS
     Route: 058
     Dates: start: 20200526

REACTIONS (8)
  - Malaise [Unknown]
  - Pain [Unknown]
  - Injection site pain [Unknown]
  - Off label use [Recovered/Resolved]
  - Fatigue [Unknown]
  - Adverse drug reaction [Unknown]
  - Urticaria [Unknown]
  - Influenza like illness [Unknown]

NARRATIVE: CASE EVENT DATE: 20200529
